FAERS Safety Report 4389406-7 (Version None)
Quarter: 2004Q3

REPORT INFORMATION
  Report Type: 
  Country: None (occurrence: None)
  Receive Date: 20040702
  Receipt Date: 20040609
  Transmission Date: 20050211
  Serious: Yes (Hospitalization)
  Sender: FDA-Public Use
  Company Number: NO-MERCK-0406NOR00009

PATIENT
  Age: 75 Year
  Sex: Male

DRUGS (1)
  1. FOSAMAX [Suspect]
     Indication: OSTEOPOROSIS
     Route: 048
     Dates: end: 20040101

REACTIONS (2)
  - HAEMOGLOBIN DECREASED [None]
  - OESOPHAGEAL PERFORATION [None]
